FAERS Safety Report 21308293 (Version 4)
Quarter: 2022Q4

REPORT INFORMATION
  Report Type: Other
  Country: IE (occurrence: IE)
  Receive Date: 20220908
  Receipt Date: 20221011
  Transmission Date: 20230112
  Serious: Yes (Disabling, Other)
  Sender: FDA-Public Use
  Company Number: None

PATIENT

DRUGS (3)
  1. NEBIVOLOL HYDROCHLORIDE [Suspect]
     Active Substance: NEBIVOLOL HYDROCHLORIDE
     Indication: Ventricular extrasystoles
     Dosage: 1.25 MILLIGRAM AS HIGHER DOSES WERE CAUSING BRADYCARDIA, TITRATED DOWN TO 1.25
     Route: 065
     Dates: start: 20200810
  2. NEBIVOLOL HYDROCHLORIDE [Suspect]
     Active Substance: NEBIVOLOL HYDROCHLORIDE
     Dosage: 1.25 MILLIGRAM TITRATED DOWN TO 1.25 AS HIGHER DOSES WERE CAUSING BRADYCARDIA. THERAPY START DATE 10
     Route: 065
     Dates: start: 20220408
  3. NEBIVOLOL HYDROCHLORIDE [Suspect]
     Active Substance: NEBIVOLOL HYDROCHLORIDE
     Dosage: 1.25 MILLIGRAM RECOMMENDED THAT SHE RESTART THE NEBIVOLOL 1.25MG AS THEY FELT SHE WAS OVERALL BETTER
     Route: 065
     Dates: start: 202205

REACTIONS (2)
  - Atrial fibrillation [Not Recovered/Not Resolved]
  - Bradycardia [Unknown]

NARRATIVE: CASE EVENT DATE: 20220623
